FAERS Safety Report 4343599-6 (Version None)
Quarter: 2004Q2

REPORT INFORMATION
  Report Type: 
  Country: None (occurrence: None)
  Receive Date: 20040419
  Receipt Date: 20040412
  Transmission Date: 20050107
  Serious: Yes (Other)
  Sender: FDA-Public Use
  Company Number: 2004208810US

PATIENT
  Sex: Female

DRUGS (5)
  1. BEXTRA [Suspect]
     Indication: PAIN IN EXTREMITY
     Dates: start: 20040217
  2. NEURONTIN [Concomitant]
  3. ATACAND [Concomitant]
  4. ATENOLOL [Concomitant]
  5. HYDROCHLOROTHIAZIDE [Concomitant]

REACTIONS (1)
  - DEAFNESS UNILATERAL [None]
